FAERS Safety Report 7701540-X (Version None)
Quarter: 2011Q3

REPORT INFORMATION
  Report Type: 
  Country: None (occurrence: None)
  Receive Date: 20110819
  Receipt Date: 20110819
  Transmission Date: 20111222
  Serious: Yes (Hospitalization)
  Sender: FDA-Public Use
  Company Number: None

PATIENT
  Age: 53 Year
  Sex: Male
  Weight: 103.4201 kg

DRUGS (1)
  1. NORDITROPIN FLEXPRO [Suspect]
     Dosage: 0.15 MG QD SC
     Route: 058

REACTIONS (1)
  - ARTHRITIS [None]
